FAERS Safety Report 10696218 (Version 1)
Quarter: 2015Q1

REPORT INFORMATION
  Report Type: Spontaneous
  Country: US (occurrence: None)
  Receive Date: 20150106
  Receipt Date: 20150106
  Transmission Date: 20150721
  Serious: Yes (Other)
  Sender: FDA-Public Use
  Company Number: None

PATIENT
  Age: 56 Year
  Sex: Female
  Weight: 70.31 kg

DRUGS (2)
  1. MONTELUKAST [Suspect]
     Active Substance: MONTELUKAST SODIUM
     Indication: MULTIPLE ALLERGIES
     Dosage: 1
     Route: 048
     Dates: start: 20141004, end: 20141126
  2. MONTELUKAST [Suspect]
     Active Substance: MONTELUKAST SODIUM
     Indication: ASTHMA
     Dosage: 1
     Route: 048
     Dates: start: 20141004, end: 20141126

REACTIONS (10)
  - Feeling of despair [None]
  - Palpitations [None]
  - Abdominal discomfort [None]
  - Fear [None]
  - Withdrawal syndrome [None]
  - Suicidal ideation [None]
  - Tachycardia [None]
  - Anxiety [None]
  - Insomnia [None]
  - Blood pressure increased [None]
